FAERS Safety Report 7292257-7 (Version None)
Quarter: 2010Q4

REPORT INFORMATION
  Report Type: 
  Country: None (occurrence: None)
  Receive Date: 20101223
  Receipt Date: 20091112
  Transmission Date: 20110411
  Serious: Yes (Other)
  Sender: FDA-Public Use
  Company Number: FEI2009-2342

PATIENT
  Age: 33 Year
  Sex: Female
  Weight: 64.8644 kg

DRUGS (1)
  1. PARAGARD T 380A [Suspect]
     Indication: CONTRACEPTION
     Dosage: I.U.
     Dates: start: 20060921, end: 20091005

REACTIONS (6)
  - ABORTION SPONTANEOUS [None]
  - BREAST TENDERNESS [None]
  - METRORRHAGIA [None]
  - OVARIAN CYST [None]
  - UNINTENDED PREGNANCY [None]
  - VAGINAL HAEMORRHAGE [None]
